FAERS Safety Report 19577041 (Version 1)
Quarter: 2021Q3

REPORT INFORMATION
  Report Type: Spontaneous
  Country: US (occurrence: US)
  Receive Date: 20210719
  Receipt Date: 20210719
  Transmission Date: 20211014
  Serious: No
  Sender: FDA-Public Use
  Company Number: US-GLENMARK PHARMACEUTICALS-2021GMK053253

PATIENT

DRUGS (1)
  1. MUPIROCIN OINTMENT USP, 2% [Suspect]
     Active Substance: MUPIROCIN
     Indication: SCAB
     Dosage: UNK, BID (MORNING AND NIGHT)
     Route: 045
     Dates: start: 20190611

REACTIONS (2)
  - Incorrect route of product administration [Unknown]
  - Drug ineffective for unapproved indication [Unknown]
